FAERS Safety Report 18691026 (Version 2)
Quarter: 2021Q1

REPORT INFORMATION
  Report Type: Spontaneous
  Country: DE (occurrence: DE)
  Receive Date: 20210101
  Receipt Date: 20210122
  Transmission Date: 20210419
  Serious: Yes (Other)
  Sender: FDA-Public Use
  Company Number: NVSC2020DE339961

PATIENT
  Sex: Female
  Weight: 3.9 kg

DRUGS (6)
  1. FYCOMPA [Suspect]
     Active Substance: PERAMPANEL
     Indication: FOETAL EXPOSURE DURING PREGNANCY
     Dosage: UNK (MOTHER DOSE 6 MG, QD )
     Route: 064
     Dates: start: 2019, end: 2020
  2. LAMOTRIGINE. [Suspect]
     Active Substance: LAMOTRIGINE
     Indication: FOETAL EXPOSURE DURING PREGNANCY
     Dosage: UNK (MOTHER DOSE 450 MG, FREQUENCY UNKNOWN)
     Route: 064
     Dates: start: 2019, end: 2020
  3. LACOSAMIDE. [Suspect]
     Active Substance: LACOSAMIDE
     Dosage: UNK (MOTHER DOSE DOSE UP?TITRATED (DOSE AND FREQUENCY UNKNOWN))
     Route: 064
     Dates: start: 2020, end: 20200810
  4. LACOSAMIDE. [Suspect]
     Active Substance: LACOSAMIDE
     Indication: FOETAL EXPOSURE DURING PREGNANCY
     Dosage: UNK (MOTHER DOSE 300 MG, FREQUENCY UNKNOWN)
     Route: 064
     Dates: start: 2019, end: 2020
  5. FYCOMPA [Suspect]
     Active Substance: PERAMPANEL
     Dosage: UNK (MOTHER CASE 8 MG, QD)
     Route: 064
     Dates: start: 2020, end: 20200810
  6. LAMOTRIGINE. [Suspect]
     Active Substance: LAMOTRIGINE
     Dosage: UNK (MOTHER DOSE DOSE UP?TITRATED (DOSE AND FREQUENCY UNKNOWN))
     Route: 064
     Dates: start: 2020, end: 20200810

REACTIONS (2)
  - Foetal exposure during pregnancy [Unknown]
  - Cataract congenital [Unknown]

NARRATIVE: CASE EVENT DATE: 2020
